FAERS Safety Report 9207078 (Version 1)
Quarter: 2013Q1

REPORT INFORMATION
  Report Type: Spontaneous
  Country: US (occurrence: None)
  Receive Date: 20120731
  Receipt Date: 20120731
  Transmission Date: 20140127
  Serious: No
  Sender: FDA-Public Use
  Company Number: 2012MZ000290

PATIENT
  Sex: Female

DRUGS (8)
  1. XEOMIN [Suspect]
     Indication: SKIN WRINKLING
     Dates: start: 2012, end: 2012
  2. XEOMIN [Suspect]
     Indication: SKIN WRINKLING
     Dates: start: 2012, end: 2012
  3. XEOMIN [Suspect]
     Dates: start: 2012, end: 2012
  4. WELLBUTRIN [Concomitant]
  5. PROZAC [Concomitant]
  6. SIMVASTATIN [Suspect]
  7. LEVOTHYROXINE [Suspect]
  8. HORMONES [Concomitant]

REACTIONS (2)
  - Therapeutic response decreased [None]
  - Off label use [None]
